FAERS Safety Report 6102418-8 (Version None)
Quarter: 2009Q1

REPORT INFORMATION
  Report Type: 
  Country: None (occurrence: None)
  Receive Date: 20090304
  Receipt Date: 20090218
  Transmission Date: 20090719
  Serious: Yes (Hospitalization)
  Sender: FDA-Public Use
  Company Number: FR-ELI_LILLY_AND_COMPANY-FR200812005903

PATIENT
  Age: 76 Year
  Sex: Female
  Weight: 46 kg

DRUGS (6)
  1. FORTEO [Suspect]
     Indication: OSTEOPOROTIC FRACTURE
     Dosage: 20 UG, DAILY (1/D)
     Route: 058
     Dates: start: 20070915, end: 20081113
  2. FORTEO [Suspect]
     Dosage: UNK, UNKNOWN
     Route: 065
     Dates: start: 20090201
  3. LOPRESSOR [Concomitant]
     Indication: HYPERTENSION
     Dosage: 100 MG, UNKNOWN
     Route: 048
     Dates: start: 19800101
  4. ACTONEL [Concomitant]
     Indication: OSTEOPOROSIS
     Dosage: 35 MG, WEEKLY (1/W)
     Route: 048
  5. TANAKAN [Concomitant]
     Dosage: 120 MG, UNKNOWN
     Route: 048
     Dates: start: 20000101
  6. ZONDAR [Concomitant]
     Indication: OSTEOARTHRITIS
     Dosage: 120 MG, UNKNOWN
     Route: 048
     Dates: start: 20000101

REACTIONS (2)
  - CHOLECYSTECTOMY [None]
  - COLON CANCER [None]
